FAERS Safety Report 14969679 (Version 3)
Quarter: 2018Q3

REPORT INFORMATION
  Report Type: Report from Study
  Country: US (occurrence: US)
  Receive Date: 20180604
  Receipt Date: 20180803
  Transmission Date: 20181010
  Serious: Yes (Hospitalization)
  Sender: FDA-Public Use
  Company Number: US-OTSUKA-2018_011187

PATIENT
  Age: 89 Year
  Sex: Female

DRUGS (2)
  1. TOLVAPTAN [Suspect]
     Active Substance: TOLVAPTAN
     Indication: HYPOOSMOLAR STATE
     Dosage: 45 MG, QD (15 MG THREE TABLETS)
     Route: 048
     Dates: start: 20180412
  2. TOLVAPTAN [Suspect]
     Active Substance: TOLVAPTAN
     Indication: HYPONATRAEMIA

REACTIONS (7)
  - Vomiting [Unknown]
  - Incorrect dose administered [Unknown]
  - Constipation [Not Recovered/Not Resolved]
  - Incorrect drug administration duration [Unknown]
  - Intestinal obstruction [Unknown]
  - Thirst [Not Recovered/Not Resolved]
  - Drug dose omission [Unknown]

NARRATIVE: CASE EVENT DATE: 2018
